FAERS Safety Report 9026654 (Version 1)
Quarter: 2013Q1

REPORT INFORMATION
  Report Type: Spontaneous
  Country: US (occurrence: None)
  Receive Date: 20130114
  Receipt Date: 20130114
  Transmission Date: 20140127
  Serious: Yes (Life-Threatening, Hospitalization)
  Sender: FDA-Public Use
  Company Number: None

PATIENT
  Sex: Male
  Weight: 117.94 kg

DRUGS (2)
  1. CRESTOR [Suspect]
     Dates: start: 20120130
  2. ROSUVASTATIN [Suspect]
     Dates: start: 20120305

REACTIONS (5)
  - Abdominal pain upper [None]
  - Rhabdomyolysis [None]
  - Dizziness [None]
  - Muscle disorder [None]
  - Dyspnoea [None]
